FAERS Safety Report 9485624 (Version 2)
Quarter: 2013Q4

REPORT INFORMATION
  Report Type: Spontaneous
  Country: DE (occurrence: DE)
  Receive Date: 20130829
  Receipt Date: 20131018
  Transmission Date: 20140711
  Serious: Yes (Other)
  Sender: FDA-Public Use
  Company Number: DE-AMGEN-DEUSP2013060392

PATIENT
  Age: 74 Year
  Sex: Female

DRUGS (1)
  1. ENBREL [Suspect]
     Indication: RHEUMATOID ARTHRITIS
     Dosage: UNK
     Route: 065
     Dates: start: 20130423

REACTIONS (3)
  - Arthropod bite [Recovered/Resolved with Sequelae]
  - Rheumatic disorder [Not Recovered/Not Resolved]
  - Borrelia infection [Not Recovered/Not Resolved]
